FAERS Safety Report 6368965-9 (Version None)
Quarter: 2009Q3

REPORT INFORMATION
  Report Type: 
  Country: None (occurrence: None)
  Receive Date: 20090922
  Receipt Date: 20090910
  Transmission Date: 20100115
  Serious: Yes (Hospitalization)
  Sender: FDA-Public Use
  Company Number: FR-GILEAD-2009-0024204

PATIENT
  Age: 51 Year
  Sex: Female
  Weight: 54 kg

DRUGS (1)
  1. TRUVADA [Suspect]
     Indication: HIV INFECTION

REACTIONS (2)
  - DRUG LEVEL INCREASED [None]
  - RENAL TUBULAR DISORDER [None]
